FAERS Safety Report 8845896 (Version 1)
Quarter: 2012Q4

REPORT INFORMATION
  Report Type: 
  Country: US (occurrence: US)
  Receive Date: 20121017
  Receipt Date: 20121017
  Transmission Date: 20130627
  Serious: Yes (Other)
  Sender: FDA-Public Use
  Company Number: US-FRI-1000039297

PATIENT
  Age: 35 Year
  Sex: Female

DRUGS (5)
  1. VIIBRYD [Suspect]
     Indication: GENERALISED ANXIETY DISORDER
     Dosage: 10MG
     Route: 048
     Dates: start: 2012, end: 2012
  2. VIIBRYD [Suspect]
     Dosage: 20MG
     Route: 048
     Dates: start: 2012, end: 2012
  3. VIIBRYD [Suspect]
     Indication: GENERALISED ANXIETY DISORDER
     Dosage: 40MG
     Route: 048
     Dates: start: 201209, end: 201210
  4. VIIBRYD [Suspect]
     Dosage: 20 MG
     Route: 048
     Dates: start: 201210
  5. ALPRAZOLAM [Concomitant]
     Indication: GENERALISED ANXIETY DISORDER
     Dosage: 0.25MG AS NEEDED

REACTIONS (3)
  - Presyncope [Not Recovered/Not Resolved]
  - Hyperhidrosis [Not Recovered/Not Resolved]
  - Off label use [Not Recovered/Not Resolved]
